FAERS Safety Report 23219653 (Version 1)
Quarter: 2023Q4

REPORT INFORMATION
  Report Type: Spontaneous
  Country: US (occurrence: US)
  Receive Date: 20231122
  Receipt Date: 20231122
  Transmission Date: 20240110
  Serious: No
  Sender: FDA-Public Use
  Company Number: US-AVADEL CNS PHARMACEUTICALS, LLC-2023AVA00241

PATIENT
  Sex: Female

DRUGS (14)
  1. LUMRYZ [Suspect]
     Active Substance: SODIUM OXYBATE
     Indication: Narcolepsy
     Dosage: 4.5 MG, 1X/DAY NIGHTLY
     Dates: start: 20230930, end: 20231007
  2. LUMRYZ [Suspect]
     Active Substance: SODIUM OXYBATE
     Indication: Cataplexy
  3. LUMRYZ [Suspect]
     Active Substance: SODIUM OXYBATE
     Indication: Rapid eye movement sleep behaviour disorder
  4. LUMRYZ [Suspect]
     Active Substance: SODIUM OXYBATE
     Indication: Narcolepsy
     Dosage: 6 G, 1X/DAY NIGHTLY
     Dates: start: 20231008, end: 202310
  5. LUMRYZ [Suspect]
     Active Substance: SODIUM OXYBATE
     Indication: Cataplexy
  6. LUMRYZ [Suspect]
     Active Substance: SODIUM OXYBATE
     Indication: Rapid eye movement sleep behaviour disorder
  7. LUMRYZ [Suspect]
     Active Substance: SODIUM OXYBATE
     Indication: Narcolepsy
     Dosage: 7.5 G
     Dates: start: 202310
  8. LUMRYZ [Suspect]
     Active Substance: SODIUM OXYBATE
     Indication: Cataplexy
  9. LUMRYZ [Suspect]
     Active Substance: SODIUM OXYBATE
     Indication: Rapid eye movement sleep behaviour disorder
  10. ADDERALL XR [Concomitant]
     Active Substance: AMPHETAMINE ASPARTATE\AMPHETAMINE SULFATE\DEXTROAMPHETAMINE SACCHARATE\DEXTROAMPHETAMINE SULFATE
  11. WELLBUTRIN [Concomitant]
     Active Substance: BUPROPION HYDROCHLORIDE
  12. BUSPAR [Concomitant]
     Active Substance: BUSPIRONE HYDROCHLORIDE
  13. UNSPECIFIED INGREDIENT [Concomitant]
     Active Substance: UNSPECIFIED INGREDIENT
  14. UNSPECIFIED INGREDIENT [Concomitant]
     Active Substance: UNSPECIFIED INGREDIENT

REACTIONS (11)
  - Middle insomnia [Recovering/Resolving]
  - Poor quality sleep [Recovering/Resolving]
  - Bradyphrenia [Recovering/Resolving]
  - Initial insomnia [Recovering/Resolving]
  - Microsleep [Recovering/Resolving]
  - Malabsorption [Recovered/Resolved]
  - Therapeutic response unexpected [Not Recovered/Not Resolved]
  - Sleep talking [Recovering/Resolving]
  - Drug ineffective [Unknown]
  - Somnolence [Recovering/Resolving]
  - Inappropriate schedule of product administration [Recovered/Resolved]

NARRATIVE: CASE EVENT DATE: 20230101
